FAERS Safety Report 7255337-8 (Version None)
Quarter: 2011Q1

REPORT INFORMATION
  Report Type: 
  Country: None (occurrence: None)
  Receive Date: 20110129
  Receipt Date: 20100314
  Transmission Date: 20110831
  Serious: No
  Sender: FDA-Public Use
  Company Number: US-ABBOTT-10P-163-0632183-00

PATIENT
  Sex: Female

DRUGS (2)
  1. HUMIRA [Suspect]
     Indication: ANKYLOSING SPONDYLITIS
     Dates: start: 20100214
  2. OXYCODONE [Concomitant]
     Indication: PAIN

REACTIONS (3)
  - GROIN PAIN [None]
  - URINARY TRACT INFECTION [None]
  - ARTHRALGIA [None]
